FAERS Safety Report 5954498-8 (Version None)
Quarter: 2008Q4

REPORT INFORMATION
  Report Type: 
  Country: None (occurrence: None)
  Receive Date: 20081117
  Receipt Date: 20040803
  Transmission Date: 20090506
  Serious: No
  Sender: FDA-Public Use
  Company Number: US-ABBOTT-08P-163-0454440-00

PATIENT
  Sex: Male

DRUGS (1)
  1. TARKA [Suspect]
     Indication: DRUG USE FOR UNKNOWN INDICATION

REACTIONS (1)
  - HYPOAESTHESIA [None]
